FAERS Safety Report 6423638-9 (Version None)
Quarter: 2009Q4

REPORT INFORMATION
  Report Type: 
  Country: None (occurrence: None)
  Receive Date: 20091030
  Receipt Date: 20091030
  Transmission Date: 20100525
  Serious: No
  Sender: FDA-Public Use
  Company Number: None

PATIENT
  Age: 57 Year
  Sex: Male

DRUGS (1)
  1. DULOXETINE HYDROCHLORIDE [Suspect]
     Indication: DEPRESSION
     Dosage: 60 MG BID PO
     Dates: start: 20071130, end: 20090805

REACTIONS (7)
  - AGITATION [None]
  - DYSARTHRIA [None]
  - HALLUCINATION [None]
  - MENINGITIS [None]
  - PARANOIA [None]
  - TONGUE DISORDER [None]
  - TREMOR [None]
